FAERS Safety Report 5240722-6 (Version None)
Quarter: 2007Q1

REPORT INFORMATION
  Report Type: 
  Country: None (occurrence: None)
  Receive Date: 20061201
  Receipt Date: 20060930
  Transmission Date: 20070707
  Serious: No
  Sender: FDA-Public Use
  Company Number: 2006PV022299

PATIENT
  Age: 64 Year
  Sex: Female
  Weight: 70.7611 kg

DRUGS (4)
  1. BYETTA [Suspect]
     Indication: DIABETES MELLITUS NON-INSULIN-DEPENDENT
     Dosage: SEE IMAGE
     Route: 058
     Dates: start: 20060901, end: 20060925
  2. BYETTA [Suspect]
     Indication: DIABETES MELLITUS NON-INSULIN-DEPENDENT
     Dosage: SEE IMAGE
     Route: 058
     Dates: start: 20060926
  3. GLUCOPHAGE [Concomitant]
  4. AMARYL [Concomitant]

REACTIONS (6)
  - DYSGEUSIA [None]
  - NAUSEA [None]
  - PARANASAL SINUS HYPERSECRETION [None]
  - SINUS HEADACHE [None]
  - VOMITING [None]
  - WEIGHT DECREASED [None]
